FAERS Safety Report 20217978 (Version 1)
Quarter: 2021Q4

REPORT INFORMATION
  Report Type: Spontaneous
  Country: US (occurrence: US)
  Receive Date: 20211222
  Receipt Date: 20211222
  Transmission Date: 20220304
  Serious: Yes (Other)
  Sender: FDA-Public Use
  Company Number: US-GLAXOSMITHKLINE-US2021260565

PATIENT
  Weight: 115 kg

DRUGS (1)
  1. FLONASE ALLERGY RELIEF [Suspect]
     Active Substance: FLUTICASONE PROPIONATE
     Indication: Product used for unknown indication
     Dosage: UNK
     Dates: start: 202109, end: 202111

REACTIONS (16)
  - Cardiac disorder [Recovered/Resolved]
  - Cardiovascular disorder [Recovered/Resolved]
  - Extrasystoles [Recovered/Resolved]
  - Cerebral disorder [Recovered/Resolved]
  - Respiratory rate decreased [Recovered/Resolved]
  - Angiopathy [Unknown]
  - Neuropathy peripheral [Recovered/Resolved]
  - Nasal dryness [Recovered/Resolved]
  - Dizziness [Recovered/Resolved]
  - Eye irritation [Unknown]
  - Visual impairment [Recovered/Resolved]
  - Dry eye [Unknown]
  - Ocular hyperaemia [Unknown]
  - Hypoxia [Recovered/Resolved]
  - Somnolence [Recovered/Resolved]
  - Lethargy [Recovered/Resolved]

NARRATIVE: CASE EVENT DATE: 20210901
